FAERS Safety Report 4559952-1 (Version None)
Quarter: 2005Q1

REPORT INFORMATION
  Report Type: 
  Country: None (occurrence: None)
  Receive Date: 20050120
  Receipt Date: 20050120
  Transmission Date: 20050727
  Serious: Yes (Other)
  Sender: FDA-Public Use
  Company Number: None

PATIENT
  Sex: Female

DRUGS (14)
  1. REMICADE [Suspect]
     Indication: RHEUMATOID ARTHRITIS
     Dosage: 20MG INFUSED  Q8WKS 250MG
  2. DIAZEPAM [Concomitant]
  3. CLONIDINE [Concomitant]
  4. FELODIPINE [Concomitant]
  5. FOSINOPRIL [Concomitant]
  6. PLAVIX [Concomitant]
  7. GUAIFENESIN [Concomitant]
  8. METOPROLOL [Concomitant]
  9. TRAZODONE [Concomitant]
  10. METHOTREXATE [Concomitant]
  11. OMEPRAZOLE [Concomitant]
  12. ATORVASTATIN [Concomitant]
  13. ALENDRONATE SODIUM [Concomitant]
  14. SERTRALINE HCL [Concomitant]

REACTIONS (1)
  - PRURITUS [None]
